FAERS Safety Report 7588791-2 (Version None)
Quarter: 2011Q2

REPORT INFORMATION
  Report Type: 
  Country: None (occurrence: None)
  Receive Date: 20110627
  Receipt Date: 20110620
  Transmission Date: 20111010
  Serious: Yes (Other)
  Sender: FDA-Public Use
  Company Number: 2011SP026028

PATIENT
  Age: 35 Year
  Sex: Female

DRUGS (1)
  1. CONTI-MARVELON 20 (DESOGESTREL/ETHINYLESTRADIOL /00570801/) [Suspect]
     Indication: CONTRACEPTION

REACTIONS (3)
  - HYPOTHYROIDISM [None]
  - GOITRE [None]
  - CARBOHYDRATE TOLERANCE DECREASED [None]
